FAERS Safety Report 4826303-4 (Version None)
Quarter: 2005Q4

REPORT INFORMATION
  Report Type: 
  Country: None (occurrence: None)
  Receive Date: 20051111
  Receipt Date: 20051031
  Transmission Date: 20060501
  Serious: Yes (Other)
  Sender: FDA-Public Use
  Company Number: US-BRISTOL-MYERS SQUIBB COMPANY-13166236

PATIENT

DRUGS (1)
  1. STAVUDINE [Suspect]
     Dates: start: 19971027, end: 20020408

REACTIONS (1)
  - MYOCARDIAL INFARCTION [None]
